FAERS Safety Report 13681269 (Version 1)
Quarter: 2017Q2

REPORT INFORMATION
  Report Type: Spontaneous
  Country: US (occurrence: US)
  Receive Date: 20170622
  Receipt Date: 20170622
  Transmission Date: 20170830
  Serious: Yes (Hospitalization, Disabling)
  Sender: FDA-Public Use
  Company Number: None

PATIENT
  Age: 60 Year
  Sex: Female
  Weight: 62.1 kg

DRUGS (5)
  1. ATIVAN [Suspect]
     Active Substance: LORAZEPAM
  2. VITAMIN D3 [Concomitant]
     Active Substance: CHOLECALCIFEROL
  3. AMBIEN [Suspect]
     Active Substance: ZOLPIDEM TARTRATE
     Indication: INSOMNIA
     Route: 048
  4. TYLENOL CODEINE #3 [Concomitant]
  5. VITAMIN B12 [Concomitant]
     Active Substance: CYANOCOBALAMIN

REACTIONS (9)
  - Depression [None]
  - Eye pain [None]
  - Suicidal ideation [None]
  - Throat irritation [None]
  - Aphthous ulcer [None]
  - Chapped lips [None]
  - Gastrointestinal disorder [None]
  - Memory impairment [None]
  - Anxiety [None]

NARRATIVE: CASE EVENT DATE: 20120817
